FAERS Safety Report 5804333-3 (Version None)
Quarter: 2008Q3

REPORT INFORMATION
  Report Type: 
  Country: None (occurrence: None)
  Receive Date: 20080709
  Receipt Date: 20080630
  Transmission Date: 20090109
  Serious: Yes (Death, Hospitalization)
  Sender: FDA-Public Use
  Company Number: IT-JNJFOC-20060506302

PATIENT
  Sex: Male

DRUGS (3)
  1. LEVOFLOXACIN [Suspect]
     Indication: TOOTH ABSCESS
     Route: 048
     Dates: start: 20060410, end: 20060417
  2. ANTICOAGULANT [Concomitant]
     Route: 065
  3. AUGMENTIN '125' [Concomitant]
     Route: 065
     Dates: start: 20060410, end: 20060417

REACTIONS (6)
  - DEATH [None]
  - FATIGUE [None]
  - NAUSEA [None]
  - PALLOR [None]
  - SYNCOPE [None]
  - VOMITING [None]
